FAERS Safety Report 10923826 (Version 2)
Quarter: 2015Q2

REPORT INFORMATION
  Report Type: Spontaneous
  Country: US (occurrence: US)
  Receive Date: 20150318
  Receipt Date: 20150526
  Transmission Date: 20150821
  Serious: No
  Sender: FDA-Public Use
  Company Number: US-JNJFOC-20150102713

PATIENT

DRUGS (2)
  1. LOCAL HAEMOSTATICS [Concomitant]
     Active Substance: UNSPECIFIED INGREDIENT
     Indication: HAEMOSTASIS
     Route: 061
     Dates: start: 20141217, end: 20141217
  2. EVICEL [Suspect]
     Active Substance: FIBRINOGEN HUMAN\THROMBIN HUMAN
     Indication: HAEMOSTASIS
     Route: 061
     Dates: start: 20141217, end: 20141217

REACTIONS (2)
  - Off label use [Recovered/Resolved]
  - Product physical issue [Unknown]

NARRATIVE: CASE EVENT DATE: 20141217
